FAERS Safety Report 13472748 (Version 2)
Quarter: 2018Q2

REPORT INFORMATION
  Report Type: Spontaneous
  Country: US (occurrence: US)
  Receive Date: 20170424
  Receipt Date: 20180423
  Transmission Date: 20180711
  Serious: No
  Sender: FDA-Public Use
  Company Number: US-TEVA-721233USA

PATIENT
  Sex: Female

DRUGS (6)
  1. HYDROXYUREA. [Concomitant]
     Active Substance: HYDROXYUREA
  2. METOPROLOL. [Concomitant]
     Active Substance: METOPROLOL
  3. METOPROLOL. [Concomitant]
     Active Substance: METOPROLOL
  4. BENICAR [Concomitant]
     Active Substance: OLMESARTAN MEDOXOMIL
     Indication: HYPERTENSION
  5. ANAGRELIDE. [Suspect]
     Active Substance: ANAGRELIDE HYDROCHLORIDE
     Indication: PRODUCT USED FOR UNKNOWN INDICATION
     Dosage: DOSE: 0.5
     Route: 065
     Dates: start: 20161201, end: 201701
  6. EMLODIPINE [Concomitant]
     Indication: HYPERTENSION

REACTIONS (7)
  - Headache [Unknown]
  - Palpitations [Unknown]
  - Heart rate increased [Unknown]
  - Abdominal discomfort [Unknown]
  - Platelet count decreased [Unknown]
  - Asthenia [Unknown]
  - Diarrhoea [Unknown]
